FAERS Safety Report 5148748-8 (Version None)
Quarter: 2006Q4

REPORT INFORMATION
  Report Type: 
  Country: None (occurrence: None)
  Receive Date: 20061107
  Receipt Date: 20061025
  Transmission Date: 20070319
  Serious: Yes (Hospitalization, Other)
  Sender: FDA-Public Use
  Company Number: 231168

PATIENT
  Age: 62 Year
  Sex: Female

DRUGS (1)
  1. AVASTIN (BEVACIZUMAV) PWDR + SOLVENT, INFUSION SOLN, 100MG [Suspect]
     Indication: OVARIAN CANCER
     Dosage: 10 MG/KG, INTRAVENOUS
     Route: 042
     Dates: start: 20060717, end: 20060815

REACTIONS (3)
  - GENERAL PHYSICAL HEALTH DETERIORATION [None]
  - GUILLAIN-BARRE SYNDROME [None]
  - THERAPY NON-RESPONDER [None]
